FAERS Safety Report 9524632 (Version 1)
Quarter: 2013Q1

REPORT INFORMATION
  Report Type: Spontaneous
  Country: US (occurrence: None)
  Receive Date: 20130305
  Receipt Date: 20130305
  Transmission Date: 20140127
  Serious: Yes (Hospitalization)
  Sender: FDA-Public Use
  Company Number: 163-21880-12020652

PATIENT
  Age: 80 Year
  Sex: Male
  Weight: 88.91 kg

DRUGS (8)
  1. REVLIMID [Suspect]
     Indication: PLASMA CELL MYELOMA
     Dosage: 25 MG, QD X 21 DAYS UT DICT, PO
     Route: 048
     Dates: start: 20111122
  2. DEXAMETHASONE [Concomitant]
  3. ASA (ACETYLSALICYLIC ACID) [Concomitant]
  4. PRILOSEC [Concomitant]
  5. CASODEX (BICALUTAMIDE) [Concomitant]
  6. COUMADIN (WARFARIN SODIUM) [Concomitant]
  7. LIPITOR (ATORVASTATIN) [Concomitant]
  8. METOPROLOL [Concomitant]

REACTIONS (1)
  - Pneumonia [None]
